FAERS Safety Report 18636471 (Version 3)
Quarter: 2021Q1

REPORT INFORMATION
  Report Type: Report from Study
  Country: AU (occurrence: AU)
  Receive Date: 20201218
  Receipt Date: 20210304
  Transmission Date: 20210419
  Serious: Yes (Other)
  Sender: FDA-Public Use
  Company Number: AU-VERTEX PHARMACEUTICALS-2020-024689

PATIENT
  Age: 36 Year
  Sex: Male
  Weight: 82 kg

DRUGS (19)
  1. HYPERTONIC SALINE SOLUTION [Concomitant]
     Active Substance: SODIUM CHLORIDE
     Indication: CYSTIC FIBROSIS LUNG
     Dosage: 20 MILLILITER, QD
     Dates: start: 200506
  2. VITABDECK [Concomitant]
     Indication: MALABSORPTION
     Dosage: 2 DOSAGE FORM (CAP), QD
     Route: 048
     Dates: start: 2015
  3. MELATONIN [Concomitant]
     Active Substance: MELATONIN
     Indication: POOR QUALITY SLEEP
  4. RESVERATROL [Concomitant]
     Active Substance: DIETARY SUPPLEMENT\RESVERATROL
     Dosage: 500 MG, QD
     Route: 048
     Dates: start: 2016, end: 20201212
  5. NUROFEN [IBUPROFEN] [Concomitant]
     Active Substance: IBUPROFEN
     Indication: HEADACHE
     Dosage: 400 MG, PRN
     Route: 048
     Dates: start: 2000
  6. MELATONIN [Concomitant]
     Active Substance: MELATONIN
     Indication: SLEEP DISORDER
     Dosage: 3 MG, QD
     Route: 060
     Dates: start: 20200511, end: 20201212
  7. L?TRYPTOPHAN [Concomitant]
     Active Substance: TRYPTOPHAN
     Indication: POOR QUALITY SLEEP
  8. ATROVENT [Concomitant]
     Active Substance: IPRATROPIUM BROMIDE
     Indication: CHEST DISCOMFORT
     Dosage: 2PUFFS MDI, PRN
     Dates: start: 2018
  9. VX?445/VX?661/VX?770 [Suspect]
     Active Substance: ELEXACAFTOR\IVACAFTOR\TEZACAFTOR
     Indication: CYSTIC FIBROSIS
     Dosage: 2 TABLETS (100 MG VX445/ 50 MG TEZ/ 75 MG IVA) AM; 1 TABLET (150MG IVA) PM
     Route: 048
     Dates: start: 20200723
  10. LATANOPROST. [Concomitant]
     Active Substance: LATANOPROST
     Indication: GLAUCOMA
     Dosage: 1 DROP/ EYE, QD
     Route: 047
     Dates: start: 20200128
  11. L?TRYPTOPHAN [Concomitant]
     Active Substance: TRYPTOPHAN
     Indication: SLEEP DISORDER
     Dosage: 2 DOSAGE FORM (CAPS), QD
     Route: 048
     Dates: start: 20200511, end: 20201220
  12. SERETIDE [Concomitant]
     Active Substance: FLUTICASONE PROPIONATE\SALMETEROL XINAFOATE
     Indication: CHEST DISCOMFORT
     Dosage: 500/50 MICROGRAM MDI, BID
     Dates: start: 2010, end: 202006
  13. ACETYLCYSTEINE. [Concomitant]
     Active Substance: ACETYLCYSTEINE
     Dosage: 1 GRAM, QD
     Route: 048
     Dates: start: 20201115, end: 20201212
  14. URSODIOL. [Concomitant]
     Active Substance: URSODIOL
     Indication: LIVER FUNCTION TEST ABNORMAL
     Dosage: 500 MG, BID
     Route: 048
     Dates: start: 20200621
  15. VITAMIN B3 [Concomitant]
     Active Substance: NIACIN
     Indication: MALABSORPTION
     Dosage: 1 GRAM, QD
     Route: 048
     Dates: start: 2017, end: 20201212
  16. FLUCONAZOLE. [Concomitant]
     Active Substance: FLUCONAZOLE
     Indication: ORAL CANDIDIASIS
     Dosage: 100 MG, QD
     Route: 048
     Dates: start: 20201105, end: 20201112
  17. CREON [Concomitant]
     Active Substance: PANCRELIPASE AMYLASE\PANCRELIPASE LIPASE\PANCRELIPASE PROTEASE
     Indication: PANCREATIC FAILURE
     Dosage: 25000 UNITS, PRN
     Route: 048
     Dates: start: 1984
  18. AZITHROMYCIN ANHYDROUS. [Concomitant]
     Active Substance: AZITHROMYCIN ANHYDROUS
     Indication: CYSTIC FIBROSIS LUNG
     Dosage: 500 MG TIW
     Route: 048
     Dates: start: 201006, end: 20201116
  19. SALBUTAMOL [Concomitant]
     Active Substance: ALBUTEROL
     Indication: CYSTIC FIBROSIS LUNG
     Dosage: 6 PUFFS MDI, BID
     Dates: start: 2005

REACTIONS (3)
  - Alanine aminotransferase increased [Recovered/Resolved]
  - Gamma-glutamyltransferase increased [Recovered/Resolved]
  - Aspartate aminotransferase increased [Recovered/Resolved]

NARRATIVE: CASE EVENT DATE: 20201209
